FAERS Safety Report 6250612-8 (Version None)
Quarter: 2009Q2

REPORT INFORMATION
  Report Type: 
  Country: None (occurrence: None)
  Receive Date: 20090630
  Receipt Date: 20080728
  Transmission Date: 20091009
  Serious: No
  Sender: FDA-Public Use
  Company Number: US-ABBOTT-08P-163-0466264-00

PATIENT
  Sex: Male
  Weight: 154.36 kg

DRUGS (3)
  1. ZEMPLAR [Suspect]
     Indication: HYPERPARATHYROIDISM SECONDARY
     Route: 048
     Dates: start: 20080401
  2. FUROSEMIDE INTENSOL [Concomitant]
     Indication: FLUID RETENTION
     Route: 048
     Dates: start: 20040101
  3. UNKNOWN GREEN PILL [Concomitant]
     Indication: DRUG USE FOR UNKNOWN INDICATION
     Route: 048
     Dates: start: 20080701

REACTIONS (1)
  - DYSGEUSIA [None]
